FAERS Safety Report 5636116-1 (Version None)
Quarter: 2008Q1

REPORT INFORMATION
  Report Type: 
  Country: None (occurrence: None)
  Receive Date: 20080220
  Receipt Date: 20080220
  Transmission Date: 20080703
  Serious: Yes (Other)
  Sender: FDA-Public Use
  Company Number: None

PATIENT
  Age: 68 Year
  Sex: Male
  Weight: 106.5953 kg

DRUGS (1)
  1. MUCINEX [Suspect]
     Indication: PHARYNGOLARYNGEAL PAIN
     Dosage: 1  8 1/2 HOURS
     Dates: start: 20080216, end: 20080216

REACTIONS (2)
  - DYSGEUSIA [None]
  - SALIVARY HYPERSECRETION [None]
